FAERS Safety Report 6491344-0 (Version None)
Quarter: 2009Q4

REPORT INFORMATION
  Report Type: 
  Country: None (occurrence: None)
  Receive Date: 20091211
  Receipt Date: 20091130
  Transmission Date: 20100525
  Serious: Yes (Death, Other)
  Sender: FDA-Public Use
  Company Number: JP-PFIZER INC-2009300090

PATIENT
  Age: 85 Year
  Sex: Female

DRUGS (3)
  1. CABASER [Suspect]
     Indication: PARKINSON'S DISEASE
     Dosage: 1 MG, 3X/DAY
     Route: 048
     Dates: start: 20050101
  2. CARBIDOPA AND LEVODOPA [Concomitant]
  3. SELEGILINE HYDROCHLORIDE [Concomitant]

REACTIONS (2)
  - DEATH [None]
  - HALLUCINATION [None]
